FAERS Safety Report 11091167 (Version 1)
Quarter: 2015Q2

REPORT INFORMATION
  Report Type: Spontaneous
  Country: US (occurrence: US)
  Receive Date: 20150505
  Receipt Date: 20150505
  Transmission Date: 20150821
  Serious: No
  Sender: FDA-Public Use
  Company Number: US-BAUSCH-BL-2015-003637

PATIENT
  Age: 37 Day
  Sex: Male
  Weight: 1.87 kg

DRUGS (1)
  1. OFLOXACIN OTIC [Suspect]
     Active Substance: OFLOXACIN
     Indication: HERPES OPHTHALMIC
     Dosage: 1 DROP EACH EYE, TWICE, 1 DAY
     Route: 047
     Dates: start: 20150221, end: 20150221

REACTIONS (2)
  - Drug administration error [Recovered/Resolved]
  - No adverse event [Unknown]

NARRATIVE: CASE EVENT DATE: 20150221
